FAERS Safety Report 10169308 (Version 1)
Quarter: 2014Q2

REPORT INFORMATION
  Report Type: Spontaneous
  Country: US (occurrence: US)
  Receive Date: 20140513
  Receipt Date: 20140513
  Transmission Date: 20141212
  Serious: Yes (Other)
  Sender: FDA-Public Use
  Company Number: US-FRI-1000065968

PATIENT
  Age: 68 Year
  Sex: Female
  Weight: 82.55 kg

DRUGS (9)
  1. NAMENDA XR [Suspect]
     Indication: DEMENTIA ALZHEIMER^S TYPE
     Dosage: 7MG
     Route: 048
     Dates: start: 20140113, end: 20140120
  2. NAMENDA XR [Suspect]
     Dosage: 14MG
     Route: 048
     Dates: start: 20140121, end: 20140124
  3. OMEPRAZOLE [Concomitant]
     Dosage: 40MG
  4. HYDROCHLOROTHIAZIDE [Concomitant]
     Dosage: 25MG
  5. SYNTHROID [Concomitant]
     Dosage: 75MCG
  6. SIMVASTATIN [Concomitant]
     Dosage: 40MG
  7. ARICEPT [Concomitant]
     Dosage: 10MG
  8. ALEVE [Concomitant]
     Dosage: AS NEEDED
  9. TRAMADOL [Concomitant]
     Dosage: 50MG AS NEEDED

REACTIONS (3)
  - Suicidal ideation [Recovered/Resolved]
  - Homicidal ideation [Recovered/Resolved]
  - Mood swings [Recovered/Resolved]
